FAERS Safety Report 5713168-1 (Version None)
Quarter: 2008Q2

REPORT INFORMATION
  Report Type: 
  Country: None (occurrence: None)
  Receive Date: 20080422
  Receipt Date: 20080414
  Transmission Date: 20081010
  Serious: Yes (Hospitalization, Disabling)
  Sender: FDA-Public Use
  Company Number: GB-PURDUE-GBR_2008_0003912

PATIENT
  Age: 52 Year
  Sex: Female

DRUGS (4)
  1. OXYCONTIN [Suspect]
     Indication: PAIN
     Dosage: 2 DF, DAILY
     Route: 048
  2. EPANUTIN [Concomitant]
     Indication: DRUG USE FOR UNKNOWN INDICATION
     Route: 065
  3. PREGABALIN [Concomitant]
     Indication: DRUG USE FOR UNKNOWN INDICATION
     Route: 048
  4. WARFARIN SODIUM [Concomitant]
     Indication: DRUG USE FOR UNKNOWN INDICATION
     Dosage: UNK, UNK
     Route: 048

REACTIONS (5)
  - CONFUSIONAL STATE [None]
  - DELIRIUM [None]
  - EXTRAPYRAMIDAL DISORDER [None]
  - HALLUCINATION [None]
  - SEDATION [None]
